FAERS Safety Report 24384754 (Version 2)
Quarter: 2024Q4

REPORT INFORMATION
  Report Type: Spontaneous
  Country: JP (occurrence: JP)
  Receive Date: 20241001
  Receipt Date: 20241118
  Transmission Date: 20250114
  Serious: No
  Sender: REGENERON
  Company Number: JP-BAYER-2024A136610

PATIENT
  Age: 82 Year
  Sex: Male

DRUGS (1)
  1. EYLEA HD [Suspect]
     Active Substance: AFLIBERCEPT
     Indication: Age-related macular degeneration
     Dosage: 8MG, RIGHT EYE, ONCE, SOLUTION FOR INJECTION, 114.3 MG/ML
     Dates: start: 20240827, end: 20240827

REACTIONS (3)
  - Cataract subcapsular [Recovering/Resolving]
  - Visual impairment [Recovering/Resolving]
  - Visual acuity reduced [Recovering/Resolving]

NARRATIVE: CASE EVENT DATE: 20240829
